FAERS Safety Report 7414856-1 (Version None)
Quarter: 2011Q1

REPORT INFORMATION
  Report Type: 
  Country: None (occurrence: None)
  Receive Date: 20110302
  Receipt Date: 20101222
  Transmission Date: 20110831
  Serious: No
  Sender: FDA-Public Use
  Company Number: 024327

PATIENT
  Sex: Female

DRUGS (2)
  1. CIMZIA [Suspect]
     Indication: CROHN'S DISEASE
     Dosage: (SUBCUTANEOUS)
     Route: 058
     Dates: start: 20100503
  2. ANTIBIOTICS [Concomitant]

REACTIONS (5)
  - ORAL PAIN [None]
  - MALAISE [None]
  - CROHN'S DISEASE [None]
  - OVERGROWTH BACTERIAL [None]
  - APPLICATION SITE SWELLING [None]
